FAERS Safety Report 7963235-7 (Version None)
Quarter: 2011Q4

REPORT INFORMATION
  Report Type: 
  Country: None (occurrence: None)
  Receive Date: 20111208
  Receipt Date: 20111202
  Transmission Date: 20120403
  Serious: No
  Sender: FDA-Public Use
  Company Number: US-BIOGENIDEC-2011BI046073

PATIENT
  Sex: Female

DRUGS (3)
  1. AVONEX [Suspect]
     Indication: MULTIPLE SCLEROSIS
     Route: 030
     Dates: start: 20080122
  2. AVONEX [Suspect]
     Route: 030
     Dates: start: 20010115, end: 20070122
  3. MIDODRINE HYDROCHLORIDE [Concomitant]
     Indication: HYPOTENSION

REACTIONS (10)
  - MITRAL VALVE PROLAPSE [None]
  - BLOOD PRESSURE DECREASED [None]
  - DYSPNOEA [None]
  - CARDIAC MURMUR [None]
  - CHEST PAIN [None]
  - FATIGUE [None]
  - MIGRAINE [None]
  - CHEST DISCOMFORT [None]
  - INFLUENZA LIKE ILLNESS [None]
  - DIZZINESS [None]
